FAERS Safety Report 6597147-0 (Version None)
Quarter: 2010Q1

REPORT INFORMATION
  Report Type: 
  Country: None (occurrence: None)
  Receive Date: 20100223
  Receipt Date: 20100210
  Transmission Date: 20100710
  Serious: Yes (Hospitalization)
  Sender: FDA-Public Use
  Company Number: JP-ROCHE-683016

PATIENT
  Sex: Male
  Weight: 61.3 kg

DRUGS (6)
  1. PEG-INTERFERON ALFA 2A (RO 25-8310) [Suspect]
     Indication: HEPATITIS C
     Dosage: DRUG DISCONTINUED
     Route: 058
     Dates: start: 20091001, end: 20100113
  2. PEG-INTERFERON ALFA 2A (RO 25-8310) [Suspect]
     Route: 058
     Dates: start: 20100203
  3. RIBAVIRIN [Suspect]
     Indication: HEPATITIS C
     Dosage: DISCONTINUED
     Route: 048
     Dates: start: 20091001, end: 20100117
  4. RIBAVIRIN [Suspect]
     Route: 048
     Dates: start: 20100118, end: 20100118
  5. RIBAVIRIN [Suspect]
     Route: 048
     Dates: start: 20100203
  6. TMC435 [Concomitant]
     Dosage: FORM: PERORAL AGENT
     Route: 048
     Dates: start: 20091001, end: 20091223

REACTIONS (3)
  - HEAD INJURY [None]
  - RADIUS FRACTURE [None]
  - VERTIGO POSITIONAL [None]
